FAERS Safety Report 18086692 (Version 1)
Quarter: 2020Q3

REPORT INFORMATION
  Report Type: Spontaneous
  Country: RU (occurrence: RU)
  Receive Date: 20200729
  Receipt Date: 20200729
  Transmission Date: 20201103
  Serious: Yes (Other)
  Sender: FDA-Public Use
  Company Number: RU-NOVOPROD-741835

PATIENT
  Age: 26 Year
  Sex: Female

DRUGS (3)
  1. NOVORAPID [Suspect]
     Active Substance: INSULIN ASPART
     Dosage: 10.4 IU
     Route: 058
     Dates: start: 20200714
  2. NOVORAPID [Suspect]
     Active Substance: INSULIN ASPART
     Dosage: 2.3 IU ANOTHER PACKAGE
     Route: 058
  3. NOVORAPID [Suspect]
     Active Substance: INSULIN ASPART
     Indication: TYPE 1 DIABETES MELLITUS
     Dosage: UNK
     Route: 058

REACTIONS (4)
  - Intentional product misuse [Unknown]
  - Diabetic ketoacidosis [Recovered/Resolved]
  - Product quality issue [Unknown]
  - Drug ineffective [Recovered/Resolved]

NARRATIVE: CASE EVENT DATE: 20200714
